FAERS Safety Report 8961154 (Version 2)
Quarter: 2012Q4

REPORT INFORMATION
  Report Type: 
  Country: US (occurrence: US)
  Receive Date: 20121212
  Receipt Date: 20121221
  Transmission Date: 20130627
  Serious: No
  Sender: FDA-Public Use
  Company Number: US-GLAXOSMITHKLINE-A1004895A

PATIENT
  Age: 57 Year
  Sex: Male

DRUGS (5)
  1. ADVAIR [Suspect]
     Indication: CHRONIC OBSTRUCTIVE PULMONARY DISEASE
     Dosage: 1PUFF Twice per day
     Route: 055
     Dates: start: 2007
  2. FUROSEMIDE [Concomitant]
  3. COREG [Concomitant]
  4. METHADONE [Concomitant]
  5. HERBAL SUPPLEMENTS [Concomitant]

REACTIONS (12)
  - Chronic obstructive pulmonary disease [Recovered/Resolved]
  - Secretion discharge [Recovered/Resolved]
  - Dysphonia [Recovered/Resolved]
  - Cough [Recovered/Resolved]
  - Influenza like illness [Recovered/Resolved]
  - Dyspnoea [Recovered/Resolved]
  - Ill-defined disorder [Recovered/Resolved]
  - Pain [Recovered/Resolved]
  - Sensation of heaviness [Recovered/Resolved]
  - Mucosal discolouration [Recovered/Resolved]
  - Nasopharyngitis [Not Recovered/Not Resolved]
  - Upper respiratory tract infection [Unknown]
